FAERS Safety Report 25031653 (Version 1)
Quarter: 2025Q1

REPORT INFORMATION
  Report Type: Spontaneous
  Country: US (occurrence: US)
  Receive Date: 20250303
  Receipt Date: 20250303
  Transmission Date: 20250409
  Serious: No
  Sender: PFIZER
  Company Number: US-PFIZER INC-202500044452

PATIENT
  Age: 23 Year
  Sex: Male
  Weight: 74.84 kg

DRUGS (1)
  1. CIBINQO [Suspect]
     Active Substance: ABROCITINIB
     Indication: Eczema
     Dosage: 100 MG, DAILY (EVERY MORNING)
     Dates: start: 2023

REACTIONS (1)
  - Drug ineffective [Unknown]
